FAERS Safety Report 25821859 (Version 1)
Quarter: 2025Q3

REPORT INFORMATION
  Report Type: Spontaneous
  Country: US (occurrence: US)
  Receive Date: 20250919
  Receipt Date: 20250919
  Transmission Date: 20251020
  Serious: Yes (Hospitalization)
  Sender: MYLAN
  Company Number: US-MYLANLABS-2025M1075849

PATIENT
  Sex: Female

DRUGS (4)
  1. CYCLOSPORINE [Suspect]
     Active Substance: CYCLOSPORINE
     Indication: Product used for unknown indication
  2. CYCLOSPORINE [Suspect]
     Active Substance: CYCLOSPORINE
     Route: 065
  3. CYCLOSPORINE [Suspect]
     Active Substance: CYCLOSPORINE
     Route: 065
  4. CYCLOSPORINE [Suspect]
     Active Substance: CYCLOSPORINE

REACTIONS (5)
  - Pain [Recovered/Resolved]
  - Abdominal pain [Recovered/Resolved]
  - Dyspepsia [Recovered/Resolved]
  - Ill-defined disorder [Recovered/Resolved]
  - Product substitution issue [Unknown]

NARRATIVE: CASE EVENT DATE: 20240101
